FAERS Safety Report 5758719-6 (Version None)
Quarter: 2008Q2

REPORT INFORMATION
  Report Type: 
  Country: None (occurrence: None)
  Receive Date: 20080603
  Receipt Date: 20080603
  Transmission Date: 20081010
  Serious: Yes (Hospitalization)
  Sender: FDA-Public Use
  Company Number: None

PATIENT
  Age: 58 Year
  Sex: Male

DRUGS (3)
  1. MOXIFLOXACIN HCL [Suspect]
     Indication: HYPERTENSION
     Dosage: 400 MG ONCE PO
     Route: 048
     Dates: start: 20080415, end: 20080415
  2. MOXIFLOXACIN HCL [Suspect]
     Indication: UPPER RESPIRATORY TRACT INFECTION
     Dosage: 400 MG ONCE PO
     Route: 048
     Dates: start: 20080415, end: 20080415
  3. LISINOPRIL [Suspect]
     Dosage: 80 MG EVERY DAY PO
     Route: 048
     Dates: start: 20031023, end: 20080416

REACTIONS (5)
  - ANGIOEDEMA [None]
  - CHEST DISCOMFORT [None]
  - DYSPNOEA [None]
  - PRURITUS [None]
  - SWELLING FACE [None]
